FAERS Safety Report 15177862 (Version 2)
Quarter: 2018Q4

REPORT INFORMATION
  Report Type: Report from Study
  Country: US (occurrence: US)
  Receive Date: 20180720
  Receipt Date: 20181017
  Transmission Date: 20190204
  Serious: No
  Sender: FDA-Public Use
  Company Number: US-AMGEN-USASL2018075769

PATIENT
  Age: 76 Year
  Sex: Female

DRUGS (4)
  1. REPATHA [Suspect]
     Active Substance: EVOLOCUMAB
     Indication: HYPERCHOLESTEROLAEMIA
     Dosage: 420 MG, QMO
     Route: 065
  2. LIPITOR [Concomitant]
     Active Substance: ATORVASTATIN CALCIUM
  3. FISH OIL [Concomitant]
     Active Substance: FISH OIL
  4. REPATHA [Suspect]
     Active Substance: EVOLOCUMAB
     Indication: BLOOD CHOLESTEROL ABNORMAL

REACTIONS (9)
  - Joint effusion [Unknown]
  - Ear pain [Unknown]
  - Laryngitis [Not Recovered/Not Resolved]
  - Back disorder [Unknown]
  - Back pain [Recovering/Resolving]
  - Oropharyngeal pain [Unknown]
  - Product dose omission [Unknown]
  - Vertigo [Unknown]
  - Injection site pain [Unknown]

NARRATIVE: CASE EVENT DATE: 20180530
